FAERS Safety Report 6843517-2 (Version None)
Quarter: 2010Q3

REPORT INFORMATION
  Report Type: 
  Country: None (occurrence: None)
  Receive Date: 20100712
  Receipt Date: 20100628
  Transmission Date: 20110219
  Serious: Yes (Disabling)
  Sender: FDA-Public Use
  Company Number: 2010-1661

PATIENT
  Age: 80 Year
  Sex: Female
  Weight: 70 kg

DRUGS (17)
  1. SOMATULINE DEPOT [Suspect]
     Indication: CARCINOID TUMOUR
     Dosage: (60 MG, 1 IN 4 WK), INTRAMUSCULAR
     Route: 030
     Dates: start: 20100326
  2. LACTULOSE [Concomitant]
  3. ATENOLOL [Concomitant]
  4. PRVASTATIN (PRAVASTATIN) [Concomitant]
  5. ASPIRIN [Concomitant]
  6. DIAZEPAM [Concomitant]
  7. PIROXICAM [Concomitant]
  8. SOLPADOL (PANADEINE CO) [Concomitant]
  9. NULYTELY [Concomitant]
  10. LANSOPRAZOLE [Concomitant]
  11. DEXAMETHASONE [Concomitant]
  12. PEPTAC (PEPTAC) [Concomitant]
  13. INFUMORPH [Concomitant]
  14. SEVERADOL (MORPHINE SULFATE) [Concomitant]
  15. DOUBLE BASE (ISOPROPYL MYRISTATE) [Concomitant]
  16. FUROSEMIDE [Concomitant]
  17. QUININE SULPHATE (QUININE SULFATE) [Concomitant]

REACTIONS (5)
  - DRY SKIN [None]
  - ECZEMA [None]
  - MOTOR DYSFUNCTION [None]
  - PAIN [None]
  - SKIN DISORDER [None]
